FAERS Safety Report 8085427-1 (Version None)
Quarter: 2012Q1

REPORT INFORMATION
  Report Type: 
  Country: None (occurrence: None)
  Receive Date: 20120128
  Receipt Date: 20110409
  Transmission Date: 20120608
  Serious: Yes (Hospitalization, Other)
  Sender: FDA-Public Use
  Company Number: US-ABBOTT-11P-163-0700926-00

PATIENT
  Sex: Female
  Weight: 120.31 kg

DRUGS (3)
  1. APRISO [Concomitant]
     Indication: CROHN'S DISEASE
  2. HUMIRA [Suspect]
  3. HUMIRA [Suspect]
     Indication: CROHN'S DISEASE
     Dates: start: 20100901, end: 20110101

REACTIONS (5)
  - ABSCESS [None]
  - INJECTION SITE PAIN [None]
  - ARTHRALGIA [None]
  - SUBCUTANEOUS ABSCESS [None]
  - BACTERIAL INFECTION [None]
